FAERS Safety Report 9890859 (Version 1)
Quarter: 2014Q1

REPORT INFORMATION
  Report Type: Spontaneous
  Country: SE (occurrence: SE)
  Receive Date: 20140212
  Receipt Date: 20140212
  Transmission Date: 20141002
  Serious: Yes (Other)
  Sender: FDA-Public Use
  Company Number: SE-ASTELLAS-2014EU001008

PATIENT
  Age: 28 Year
  Sex: Female

DRUGS (8)
  1. TACROLIMUS SYSTEMIC [Suspect]
     Indication: IMMUNOSUPPRESSION
     Dosage: UNK
     Route: 065
  2. MYCOPHENOLATE MOFETIL [Suspect]
     Indication: IMMUNOSUPPRESSION
     Dosage: UNK
     Route: 065
  3. PREDNISOLONE [Suspect]
     Indication: IMMUNOSUPPRESSION
     Dosage: UNK
     Route: 065
  4. AZATHIOPRINE [Suspect]
     Indication: IMMUNOSUPPRESSION
     Dosage: UNK
     Route: 065
  5. VITAMIN D                          /00107901/ [Concomitant]
     Dosage: UNK
     Route: 065
  6. FOLIC ACID [Concomitant]
     Dosage: UNK
     Route: 065
  7. VITAMIN B12                        /00056201/ [Concomitant]
     Dosage: UNK
     Route: 065
  8. ZINC [Concomitant]
     Dosage: UNK
     Route: 065

REACTIONS (10)
  - Exposure during pregnancy [Unknown]
  - Transplant rejection [Unknown]
  - Blood creatinine increased [Unknown]
  - Anaemia [Unknown]
  - Hypertension [Unknown]
  - Foetal growth restriction [Unknown]
  - C-reactive protein increased [Unknown]
  - Haemorrhage [Unknown]
  - Retained placenta or membranes [Unknown]
  - Cardiac failure [Recovering/Resolving]
